FAERS Safety Report 5743049-9 (Version None)
Quarter: 2008Q2

REPORT INFORMATION
  Report Type: 
  Country: None (occurrence: None)
  Receive Date: 20080512
  Receipt Date: 20080128
  Transmission Date: 20081010
  Serious: Yes (Other)
  Sender: FDA-Public Use
  Company Number: PIR# 0801074A

PATIENT
  Age: 30 Year
  Sex: Female

DRUGS (1)
  1. CEFTRIAXONE [Suspect]

REACTIONS (2)
  - PRURITUS [None]
  - SKIN DISORDER [None]
